FAERS Safety Report 21014687 (Version 3)
Quarter: 2022Q4

REPORT INFORMATION
  Report Type: Spontaneous
  Country: JP (occurrence: None)
  Receive Date: 20220628
  Receipt Date: 20221011
  Transmission Date: 20230112
  Serious: Yes (Other)
  Sender: FDA-Public Use
  Company Number: 2022A230563

PATIENT
  Age: 26609 Day
  Sex: Female

DRUGS (9)
  1. NEXIUM [Suspect]
     Active Substance: ESOMEPRAZOLE MAGNESIUM
     Indication: Gastrooesophageal reflux disease
     Route: 048
     Dates: start: 20220609, end: 20220612
  2. NEXIUM [Suspect]
     Active Substance: ESOMEPRAZOLE MAGNESIUM
     Indication: Gastrooesophageal reflux disease
     Route: 048
     Dates: start: 20220609, end: 20220612
  3. BIFIDOBACTERIUM SPP. [Concomitant]
     Active Substance: BIFIDOBACTERIUM SPP.
     Indication: Abdominal distension
     Route: 048
     Dates: start: 20220609, end: 20220612
  4. BIFIDOBACTERIUM SPP. [Concomitant]
     Active Substance: BIFIDOBACTERIUM SPP.
     Indication: Flatulence
     Route: 048
     Dates: start: 20220609, end: 20220612
  5. HERBAL NOS [Concomitant]
     Active Substance: HERBALS
     Indication: Gastritis
     Route: 048
     Dates: start: 20220609, end: 20220612
  6. HERBAL NOS [Concomitant]
     Active Substance: HERBALS
     Indication: Flatulence
     Route: 048
     Dates: start: 20220609, end: 20220612
  7. BAZEDOXIFENE [Concomitant]
     Active Substance: BAZEDOXIFENE
     Indication: Osteoporosis
     Route: 048
  8. ELDECALCITOL [Concomitant]
     Active Substance: ELDECALCITOL
     Indication: Osteoporosis
     Route: 048
  9. ZINC [Concomitant]
     Active Substance: ZINC
     Indication: Hypozincaemia
     Route: 048

REACTIONS (1)
  - Rhabdomyolysis [Recovering/Resolving]

NARRATIVE: CASE EVENT DATE: 20220609
